FAERS Safety Report 9614540 (Version 4)
Quarter: 2013Q4

REPORT INFORMATION
  Report Type: Report from Study
  Country: AR (occurrence: AR)
  Receive Date: 20131011
  Receipt Date: 20131111
  Transmission Date: 20140711
  Serious: Yes (Hospitalization, Other)
  Sender: FDA-Public Use
  Company Number: PHHY2013AR114015

PATIENT
  Age: 67 Year
  Sex: Male

DRUGS (1)
  1. ONBREZ [Suspect]
     Dosage: 300 UG, UNK

REACTIONS (2)
  - Bladder cancer [Unknown]
  - Hernia [Unknown]
